FAERS Safety Report 4864431-8 (Version None)
Quarter: 2005Q4

REPORT INFORMATION
  Report Type: 
  Country: None (occurrence: None)
  Receive Date: 20051222
  Receipt Date: 20051213
  Transmission Date: 20060501
  Serious: Yes (Hospitalization)
  Sender: FDA-Public Use
  Company Number: PHEH2005US13416

PATIENT
  Age: 69 Year
  Sex: Female
  Weight: 82.086 kg

DRUGS (2)
  1. DIOVAN HCT [Suspect]
     Indication: HYPERTENSION
     Dosage: 160/12.5 MG
     Dates: end: 20051101
  2. NEXIUM [Concomitant]
     Indication: REFLUX OESOPHAGITIS

REACTIONS (7)
  - ABDOMINAL PAIN [None]
  - COLON OPERATION [None]
  - COLOSTOMY [None]
  - COMA [None]
  - FLUID RETENTION [None]
  - INFECTION [None]
  - PYREXIA [None]
